FAERS Safety Report 10230463 (Version 1)
Quarter: 2014Q2

REPORT INFORMATION
  Report Type: Spontaneous
  Country: IT (occurrence: IT)
  Receive Date: 20140611
  Receipt Date: 20140611
  Transmission Date: 20141212
  Serious: Yes (Other)
  Sender: FDA-Public Use
  Company Number: IT-DSJP-DSE-2014-110323

PATIENT
  Sex: 0

DRUGS (2)
  1. OLMESARTAN MEDOXOMIL [Suspect]
     Indication: HYPERTENSION
     Dosage: 10 MG, QD
     Route: 048
  2. PANTORC                            /01263202/ [Concomitant]
     Indication: PROPHYLAXIS AGAINST GASTROINTESTINAL ULCER
     Dosage: 40 MG, UNK
     Route: 048

REACTIONS (4)
  - Weight decreased [Recovered/Resolved]
  - Tetanus [Recovered/Resolved]
  - Electrolyte imbalance [Unknown]
  - Diarrhoea [Recovered/Resolved]
